FAERS Safety Report 8826771 (Version 2)
Quarter: 2012Q4

REPORT INFORMATION
  Report Type: 
  Country: GB (occurrence: GB)
  Receive Date: 20121005
  Receipt Date: 20121227
  Transmission Date: 20130627
  Serious: Yes (Other)
  Sender: FDA-Public Use
  Company Number: GB-GLAXOSMITHKLINE-B0833247A

PATIENT
  Age: 54 Year
  Sex: Female

DRUGS (6)
  1. SEROXAT [Suspect]
     Indication: PRODUCT USED FOR UNKNOWN INDICATION
     Route: 065
     Dates: start: 1994
  2. ZOPICLONE [Concomitant]
  3. DIAZEPAM [Concomitant]
  4. METFORMIN [Concomitant]
  5. SODIUM VALPROATE [Concomitant]
     Indication: AFFECTIVE DISORDER
  6. QUETIAPINE [Concomitant]
     Indication: AFFECTIVE DISORDER

REACTIONS (20)
  - Convulsion [Unknown]
  - Intentional self-injury [Unknown]
  - Suicidal ideation [Unknown]
  - Cognitive disorder [Unknown]
  - Akathisia [Unknown]
  - Tardive dyskinesia [Unknown]
  - Hallucination, auditory [Not Recovered/Not Resolved]
  - Restless legs syndrome [Unknown]
  - Mania [Unknown]
  - Agitation [Unknown]
  - Neck pain [Unknown]
  - Insomnia [Unknown]
  - Muscle spasms [Unknown]
  - Treatment noncompliance [Unknown]
  - Amnesia [Unknown]
  - Thinking abnormal [Unknown]
  - Weight increased [Unknown]
  - Insulin resistance [Unknown]
  - Back pain [Unknown]
  - Chronic fatigue syndrome [Unknown]
